FAERS Safety Report 15701301 (Version 2)
Quarter: 2019Q3

REPORT INFORMATION
  Report Type: Spontaneous
  Country: RU (occurrence: RU)
  Receive Date: 20181207
  Receipt Date: 20190916
  Transmission Date: 20191004
  Serious: Yes (Death, Hospitalization, Other)
  Sender: FDA-Public Use
  Company Number: RU-BIOMARINAP-RU-2018-121062

PATIENT

DRUGS (1)
  1. ALDURAZYME [Suspect]
     Active Substance: LARONIDASE
     Indication: MUCOPOLYSACCHARIDOSIS I
     Dosage: UNK
     Route: 041
     Dates: start: 201810

REACTIONS (4)
  - Poor venous access [Unknown]
  - Airway complication of anaesthesia [Unknown]
  - Cardiac arrest [Fatal]
  - Central venous catheterisation [Unknown]

NARRATIVE: CASE EVENT DATE: 20181128
